FAERS Safety Report 6958371-8 (Version None)
Quarter: 2010Q3

REPORT INFORMATION
  Report Type: 
  Country: None (occurrence: None)
  Receive Date: 20100830
  Receipt Date: 20100830
  Transmission Date: 20110219
  Serious: Yes (Hospitalization)
  Sender: FDA-Public Use
  Company Number: None

PATIENT
  Age: 46 Year
  Sex: Male
  Weight: 63.5 kg

DRUGS (6)
  1. PIOGLITAZONE [Suspect]
     Dosage: 1 DAILY MOUTH
     Dates: start: 20100318
  2. LORTAB [Concomitant]
  3. CREON [Concomitant]
  4. RESTORIL [Concomitant]
  5. METFORMIN HCL [Concomitant]
  6. PRILOSEC [Concomitant]

REACTIONS (6)
  - ABDOMINAL PAIN [None]
  - DIARRHOEA [None]
  - HEPATIC ENZYME INCREASED [None]
  - NAUSEA [None]
  - PANCREATITIS RELAPSING [None]
  - VOMITING [None]
